FAERS Safety Report 20783475 (Version 5)
Quarter: 2022Q3

REPORT INFORMATION
  Report Type: Spontaneous
  Country: JP (occurrence: JP)
  Receive Date: 20220504
  Receipt Date: 20220715
  Transmission Date: 20221027
  Serious: Yes (Death)
  Sender: FDA-Public Use
  Company Number: JP-PFIZER INC-202200635690

PATIENT
  Age: 88 Year
  Sex: Male
  Weight: 59.3 kg

DRUGS (8)
  1. PAXLOVID [Suspect]
     Active Substance: NIRMATRELVIR\RITONAVIR
     Indication: COVID-19 treatment
     Dosage: SINGLE DOSE OF PAXLOVID PACK WAS 150 MG OF NIRMATRELVIR AND 100 MG OF RITONAVIR
     Route: 048
     Dates: start: 20220412, end: 20220413
  2. AMLODIPINE [Concomitant]
     Active Substance: AMLODIPINE BESYLATE
     Dosage: 10 MG, DAILY
     Route: 048
  3. CANDESARTAN CILEXETIL [Concomitant]
     Active Substance: CANDESARTAN CILEXETIL
     Dosage: 8 MG, DAILY
     Route: 048
     Dates: start: 20211105
  4. DONEPEZIL [Concomitant]
     Active Substance: DONEPEZIL
     Dosage: 5 MG, DAILY
     Route: 048
     Dates: start: 202111
  5. DULOXETINE [Concomitant]
     Active Substance: DULOXETINE
     Dosage: 20 MG, DAILY
     Route: 048
     Dates: start: 20211209
  6. DAYVIGO [Concomitant]
     Active Substance: LEMBOREXANT
     Dosage: 5 MG, DAILY
     Route: 048
     Dates: start: 20211126
  7. OLANZAPINE [Concomitant]
     Active Substance: OLANZAPINE
     Dosage: 1.25 MG, DAILY
     Route: 048
     Dates: start: 20211028
  8. QUETIAPINE [Concomitant]
     Active Substance: QUETIAPINE
     Dosage: 37.5, DAILY
     Route: 048
     Dates: start: 202112

REACTIONS (1)
  - Drug ineffective [Fatal]

NARRATIVE: CASE EVENT DATE: 20220401
